FAERS Safety Report 25345082 (Version 1)
Quarter: 2025Q2

REPORT INFORMATION
  Report Type: Spontaneous
  Country: MX (occurrence: MX)
  Receive Date: 20250522
  Receipt Date: 20250522
  Transmission Date: 20250717
  Serious: Yes (Other)
  Sender: TWI PHARMACEUTICALS
  Company Number: MX-TWI PHARMACEUTICAL, INC-20250500837

PATIENT
  Age: 51 Year
  Sex: Male

DRUGS (1)
  1. NAPROXEN SODIUM [Suspect]
     Active Substance: NAPROXEN SODIUM
     Indication: Myalgia
     Route: 065

REACTIONS (1)
  - Cholestatic liver injury [Unknown]
